FAERS Safety Report 11794680 (Version 2)
Quarter: 2016Q1

REPORT INFORMATION
  Report Type: Spontaneous
  Country: US (occurrence: US)
  Receive Date: 20151202
  Receipt Date: 20160314
  Transmission Date: 20160525
  Serious: Yes (Hospitalization, Other)
  Sender: FDA-Public Use
  Company Number: US-SMITH AND NEPHEW, INC-2015SMT00566

PATIENT
  Age: 59 Year
  Sex: Male
  Weight: 88.44 kg

DRUGS (5)
  1. REGRANEX [Suspect]
     Active Substance: BECAPLERMIN
     Indication: SKIN ULCER
     Dosage: UNK UNK, 1X/DAY
     Route: 061
     Dates: start: 20151001, end: 20151103
  2. AZOPT [Concomitant]
     Active Substance: BRINZOLAMIDE
     Indication: GLAUCOMA
     Dosage: 1 GTT, 2X/DAY
     Route: 047
  3. UNSPECIFIED HIGH BLOOD PRESSURE MEDICATION(S) [Concomitant]
  4. LUMIGAN [Concomitant]
     Active Substance: BIMATOPROST
     Indication: GLAUCOMA
     Dosage: 1 GTT, 1X/DAY
     Route: 047
  5. UNSPECIFIED DIABETES MEDICATION(S) [Concomitant]

REACTIONS (8)
  - Acute kidney injury [Unknown]
  - Pyrexia [Recovering/Resolving]
  - Cough [Unknown]
  - Malaise [Recovering/Resolving]
  - Diabetes mellitus inadequate control [Unknown]
  - Vitamin D deficiency [Unknown]
  - Leukocytosis [Unknown]
  - Osteomyelitis [Recovering/Resolving]

NARRATIVE: CASE EVENT DATE: 201510
